FAERS Safety Report 13566254 (Version 1)
Quarter: 2017Q2

REPORT INFORMATION
  Report Type: Spontaneous
  Country: US (occurrence: US)
  Receive Date: 20170519
  Receipt Date: 20170519
  Transmission Date: 20170830
  Serious: Yes (Disabling)
  Sender: FDA-Public Use
  Company Number: None

PATIENT
  Age: 63 Year
  Sex: Female
  Weight: 54.9 kg

DRUGS (5)
  1. LEVOFLOXACIN 500MGS [Suspect]
     Active Substance: LEVOFLOXACIN
     Indication: INFLUENZA
     Dosage: ?          QUANTITY:10 TABLET(S);?
     Dates: start: 20170504, end: 20170511
  2. GLUCOSAMINE CHONDROITIN [Concomitant]
     Active Substance: CHONDROITIN SULFATE (BOVINE)\GLUCOSAMINE HYDROCHLORIDE
  3. FISH OIL [Concomitant]
     Active Substance: FISH OIL
  4. FOSAMAX [Concomitant]
     Active Substance: ALENDRONATE SODIUM
  5. MULTIVITAMIN [Concomitant]
     Active Substance: VITAMINS

REACTIONS (2)
  - Gait disturbance [None]
  - Joint swelling [None]

NARRATIVE: CASE EVENT DATE: 20170507
